FAERS Safety Report 9047376 (Version 1)
Quarter: 2013Q1

REPORT INFORMATION
  Report Type: Report from Study
  Country: US (occurrence: US)
  Receive Date: 20130201
  Receipt Date: 20130201
  Transmission Date: 20140127
  Serious: No
  Sender: FDA-Public Use
  Company Number: US-ABBOTT-12P-163-1016521-00

PATIENT
  Age: 60 Year
  Sex: Female

DRUGS (16)
  1. HUMIRA [Suspect]
     Indication: RHEUMATOID ARTHRITIS
     Dates: start: 20120901
  2. GLUCOPHAGE [Concomitant]
     Indication: DIABETES MELLITUS
     Dosage: HALF TABLET DAILY
     Route: 048
  3. NORVASC [Concomitant]
     Indication: HYPERTENSION
     Dosage: 1 TABLET DAILY
     Route: 048
  4. XANAX [Concomitant]
     Indication: ANXIETY
     Dosage: 1 TABLET THREE TIMES A DAY AS NEEDED
     Route: 048
  5. XANAX [Concomitant]
     Indication: PANIC ATTACK
  6. ATENOLOL [Concomitant]
     Indication: HYPERTENSION
     Dosage: 1 TABLET DAILY
     Route: 048
  7. SYNTHROID [Concomitant]
     Indication: THYROIDECTOMY
     Dosage: 1 TABLET DAILY
     Route: 048
  8. FOLIC ACID [Concomitant]
     Indication: RHEUMATOID ARTHRITIS
     Dosage: 1 TABLET DAILY
     Route: 048
  9. SPIRIVA [Concomitant]
     Indication: CHRONIC OBSTRUCTIVE PULMONARY DISEASE
     Dosage: INHALER DAILY
  10. IBUPROFEN [Concomitant]
     Indication: PAIN
     Route: 048
  11. NEXIUM [Concomitant]
     Indication: DYSPEPSIA
     Dosage: 1 TABLET DAILY
     Route: 048
  12. NEXIUM [Concomitant]
     Indication: GASTROOESOPHAGEAL REFLUX DISEASE
  13. NEXIUM [Concomitant]
     Indication: HIATUS HERNIA
  14. VITAMIN D [Concomitant]
     Indication: MEDICAL DIET
     Dosage: WEEKLY
     Route: 048
  15. OXYGEN [Concomitant]
     Indication: SLEEP APNOEA SYNDROME
     Dosage: AT NIGHT
  16. PERCOCET [Concomitant]
     Indication: PAIN
     Dosage: 10/350MG UP TO 4 PILLS PER DAY
     Route: 048

REACTIONS (3)
  - Urticaria [Recovered/Resolved]
  - Reaction to previous exposure to any vaccine [Recovered/Resolved]
  - Pruritus [Unknown]
